FAERS Safety Report 11278241 (Version 1)
Quarter: 2015Q3

REPORT INFORMATION
  Report Type: Spontaneous
  Country: US (occurrence: US)
  Receive Date: 20150717
  Receipt Date: 20150717
  Transmission Date: 20151125
  Serious: Yes (Hospitalization)
  Sender: FDA-Public Use
  Company Number: US-JNJFOC-20150618382

PATIENT
  Sex: Male

DRUGS (5)
  1. INVEGA SUSTENNA [Suspect]
     Active Substance: PALIPERIDONE PALMITATE
     Indication: PRODUCT USED FOR UNKNOWN INDICATION
     Route: 030
     Dates: start: 20150602, end: 20150609
  2. INVEGA SUSTENNA [Suspect]
     Active Substance: PALIPERIDONE PALMITATE
     Indication: PRODUCT USED FOR UNKNOWN INDICATION
     Route: 030
     Dates: start: 20150609, end: 201506
  3. LITHIUM. [Concomitant]
     Active Substance: LITHIUM
     Route: 065
  4. COGENTIN [Concomitant]
     Active Substance: BENZTROPINE MESYLATE
     Route: 065
  5. PROLIXIN [Concomitant]
     Active Substance: FLUPHENAZINE HYDROCHLORIDE
     Route: 065

REACTIONS (4)
  - Psychotic disorder [Unknown]
  - Diarrhoea [Unknown]
  - Paranoia [Unknown]
  - Malaise [Unknown]

NARRATIVE: CASE EVENT DATE: 201506
